FAERS Safety Report 16761934 (Version 4)
Quarter: 2019Q4

REPORT INFORMATION
  Report Type: Report from Study
  Country: JP (occurrence: JP)
  Receive Date: 20190830
  Receipt Date: 20191217
  Transmission Date: 20200122
  Serious: Yes (Hospitalization, Other)
  Sender: FDA-Public Use
  Company Number: JP-BRISTOL-MYERS SQUIBB COMPANY-BMS-2018-110987

PATIENT
  Age: 51 Year
  Sex: Female
  Weight: 51.5 kg

DRUGS (6)
  1. NIVOLUMAB [Suspect]
     Active Substance: NIVOLUMAB
     Indication: PRODUCT USED FOR UNKNOWN INDICATION
     Dosage: 80 MILLIGRAM, Q3WK
     Route: 065
     Dates: start: 20190116, end: 20190208
  2. NEO MINOPHAGEN C [GLYCYRRHIZIC ACID, AMMONIUM SALT] [Concomitant]
     Indication: PRODUCT USED FOR UNKNOWN INDICATION
     Dosage: 40 MILLILITER
     Route: 042
     Dates: start: 20190116, end: 20190128
  3. YERVOY [Suspect]
     Active Substance: IPILIMUMAB
     Indication: MALIGNANT MELANOMA
     Dosage: 3 MILLIGRAM/KILOGRAM, Q3WK
     Route: 041
     Dates: start: 20181030, end: 20181030
  4. YERVOY [Suspect]
     Active Substance: IPILIMUMAB
     Indication: PRODUCT USED FOR UNKNOWN INDICATION
     Dosage: 3 MILLIGRAM/KILOGRAM, Q3WK
     Route: 041
     Dates: start: 20190116, end: 20190208
  5. NIVOLUMAB [Suspect]
     Active Substance: NIVOLUMAB
     Indication: MALIGNANT MELANOMA
     Dosage: 80 MILLIGRAM, Q3WK
     Route: 065
     Dates: start: 20181030, end: 20181030
  6. THYRADIN [Suspect]
     Active Substance: LEVOTHYROXINE
     Indication: PRODUCT USED FOR UNKNOWN INDICATION
     Route: 065

REACTIONS (7)
  - Meningitis [Unknown]
  - Drug-induced liver injury [Recovered/Resolved]
  - Pyrexia [Unknown]
  - Hepatic function abnormal [Recovering/Resolving]
  - Non-cardiogenic pulmonary oedema [Unknown]
  - Prescribed underdose [Unknown]
  - Myalgia [Not Recovered/Not Resolved]

NARRATIVE: CASE EVENT DATE: 20181105
